FAERS Safety Report 5103550-8 (Version None)
Quarter: 2006Q3

REPORT INFORMATION
  Report Type: 
  Country: None (occurrence: None)
  Receive Date: 20060731
  Receipt Date: 20050927
  Transmission Date: 20061208
  Serious: Yes (Hospitalization)
  Sender: FDA-Public Use
  Company Number: US-JNJFOC-20050906828

PATIENT
  Age: 42 Year
  Sex: Female
  Weight: 131.0895 kg

DRUGS (2)
  1. RISPERDAL CONSTA [Suspect]
     Indication: SCHIZOPHRENIA, PARANOID TYPE
     Dosage: 50 MG, 1 IN 2 WEEK, INTRAMUSCULAR, SEE IMAGE
     Route: 030
     Dates: start: 20050101
  2. RISPERDAL [Concomitant]

REACTIONS (3)
  - MEDICATION ERROR [None]
  - SCHIZOPHRENIA, PARANOID TYPE [None]
  - WEIGHT DECREASED [None]
